FAERS Safety Report 17167675 (Version 2)
Quarter: 2020Q1

REPORT INFORMATION
  Report Type: Spontaneous
  Country: US (occurrence: US)
  Receive Date: 20191218
  Receipt Date: 20200129
  Transmission Date: 20200409
  Serious: No
  Sender: FDA-Public Use
  Company Number: NVSC2019US071979

PATIENT
  Sex: Male

DRUGS (1)
  1. ILEVRO [Suspect]
     Active Substance: NEPAFENAC
     Indication: RETINAL DISORDER
     Dosage: UNK, QD
     Route: 065

REACTIONS (2)
  - Product container issue [Unknown]
  - Product dose omission [Unknown]
